FAERS Safety Report 5328622-4 (Version None)
Quarter: 2007Q2

REPORT INFORMATION
  Report Type: 
  Country: None (occurrence: None)
  Receive Date: 20070514
  Receipt Date: 20070427
  Transmission Date: 20071010
  Serious: Yes (Hospitalization)
  Sender: FDA-Public Use
  Company Number: 8022955

PATIENT
  Age: 39 Year
  Sex: Male
  Weight: 50 kg

DRUGS (8)
  1. KEPPRA [Suspect]
     Dosage: PO
     Route: 048
  2. KEPPRA [Suspect]
     Dosage: 850 MG / D PO
     Route: 048
     Dates: start: 20060101
  3. KEPPRA [Suspect]
     Dosage: 1000 MG /D PO
     Route: 048
  4. RISPERDAL [Suspect]
     Dosage: 1 MG 1/D PO
     Route: 048
  5. ZENTROPIL /00017401/ [Suspect]
     Indication: EPILEPSY
     Dosage: 100 MG 2/D PO
     Route: 048
  6. ORFIRIL /00228501/. MFR: NOT SPECIFIED [Suspect]
     Dosage: 100 MG 2/D PO
     Route: 048
  7. LORAZEPAM [Suspect]
     Dosage: 0.5 MG 1/D PO
     Route: 048
  8. ANTIBIOTICS [Suspect]
     Indication: SKIN LACERATION

REACTIONS (16)
  - ABDOMINAL PAIN UPPER [None]
  - APPENDICITIS [None]
  - CONDITION AGGRAVATED [None]
  - CONVULSION [None]
  - DEPRESSION [None]
  - DRUG INTERACTION [None]
  - FATIGUE [None]
  - GASTRIC DISORDER [None]
  - GASTROINTESTINAL DISORDER [None]
  - HEAD INJURY [None]
  - ILEUS [None]
  - INTESTINAL OBSTRUCTION [None]
  - NAUSEA [None]
  - SKIN LACERATION [None]
  - SUICIDAL IDEATION [None]
  - VOMITING [None]
